FAERS Safety Report 12161533 (Version 3)
Quarter: 2017Q2

REPORT INFORMATION
  Report Type: Report from Study
  Country: DE (occurrence: DE)
  Receive Date: 20160309
  Receipt Date: 20170607
  Transmission Date: 20170830
  Serious: Yes (Hospitalization)
  Sender: FDA-Public Use
  Company Number: DE-ROCHE-1642221

PATIENT
  Age: 73 Year
  Sex: Male
  Weight: 76 kg

DRUGS (9)
  1. 5-FLUOROURACIL [Concomitant]
     Active Substance: FLUOROURACIL
     Indication: COLORECTAL CANCER
     Route: 040
     Dates: start: 20150723, end: 20150903
  2. 5-FLUOROURACIL [Concomitant]
     Active Substance: FLUOROURACIL
     Route: 041
     Dates: start: 20150723, end: 20150904
  3. IRINOTECAN [Concomitant]
     Active Substance: IRINOTECAN
     Indication: COLORECTAL CANCER
     Route: 042
     Dates: start: 20150723, end: 20150903
  4. PANTOZOL [Concomitant]
     Active Substance: PANTOPRAZOLE SODIUM
     Route: 048
  5. EUBIOL (SACCHAROMYCES CEREVISIAE) [Concomitant]
     Route: 048
  6. BEVACIZUMAB [Suspect]
     Active Substance: BEVACIZUMAB
     Indication: COLORECTAL CANCER METASTATIC
     Route: 042
     Dates: start: 20150723, end: 20150903
  7. DEXAMETHASON [Concomitant]
     Active Substance: DEXAMETHASONE
     Indication: COLORECTAL CANCER
     Route: 042
     Dates: start: 20150723, end: 20150903
  8. NOVALGIN [Concomitant]
     Active Substance: METAMIZOLE SODIUM
     Route: 048
  9. FOLINIC ACID [Concomitant]
     Active Substance: LEUCOVORIN
     Indication: COLORECTAL CANCER
     Route: 042
     Dates: start: 20150723, end: 20150903

REACTIONS (6)
  - Fistula [Recovered/Resolved]
  - Procedural complication [Recovered/Resolved]
  - Pyrexia [Recovered/Resolved]
  - Colonic abscess [Recovered/Resolved]
  - Abdominal pain lower [Recovered/Resolved]
  - Procedural complication [Recovered/Resolved]

NARRATIVE: CASE EVENT DATE: 20150910
